FAERS Safety Report 6069865-4 (Version None)
Quarter: 2009Q1

REPORT INFORMATION
  Report Type: 
  Country: None (occurrence: None)
  Receive Date: 20090209
  Receipt Date: 20090204
  Transmission Date: 20090719
  Serious: Yes (Life-Threatening, Hospitalization, Other)
  Sender: FDA-Public Use
  Company Number: GB-BRISTOL-MYERS SQUIBB COMPANY-14497184

PATIENT
  Age: 48 Year
  Sex: Female

DRUGS (5)
  1. METFORMIN HCL [Suspect]
     Route: 048
     Dates: start: 20081121, end: 20090121
  2. ASPIRIN [Concomitant]
  3. GLICLAZIDE [Concomitant]
  4. LANSOPRAZOLE [Concomitant]
  5. SIMVASTATIN [Concomitant]

REACTIONS (2)
  - METABOLIC ACIDOSIS [None]
  - RENAL FAILURE ACUTE [None]
